FAERS Safety Report 10921625 (Version 1)
Quarter: 2015Q1

REPORT INFORMATION
  Report Type: Spontaneous
  Country: US (occurrence: None)
  Receive Date: 20150313
  Receipt Date: 20150313
  Transmission Date: 20150721
  Serious: Yes (Life-Threatening, Hospitalization)
  Sender: FDA-Public Use
  Company Number: None

PATIENT
  Age: 67 Year
  Sex: Female
  Weight: 82.8 kg

DRUGS (17)
  1. NEULASTA [Suspect]
     Active Substance: PEGFILGRASTIM
     Dosage: 1 PER CYCLE
     Route: 058
  2. VIT. D [Concomitant]
  3. CARBOPLATIN. [Concomitant]
     Active Substance: CARBOPLATIN
  4. LOPRESSOR [Concomitant]
     Active Substance: METOPROLOL TARTRATE
  5. VIT. C [Concomitant]
  6. VIT. E [Concomitant]
  7. CARBOPLATIN. [Concomitant]
     Active Substance: CARBOPLATIN
  8. SYNTHROID [Concomitant]
     Active Substance: LEVOTHYROXINE SODIUM
  9. FUROSEMIDE. [Concomitant]
     Active Substance: FUROSEMIDE
  10. COUMADIN [Concomitant]
     Active Substance: WARFARIN SODIUM
  11. DOXORUBICIN [Concomitant]
     Active Substance: DOXORUBICIN
  12. TAXOL [Concomitant]
     Active Substance: PACLITAXEL
  13. DIGOXIL [Concomitant]
  14. CARBOPLATIN. [Concomitant]
     Active Substance: CARBOPLATIN
  15. ACIPHEX [Concomitant]
     Active Substance: RABEPRAZOLE SODIUM
  16. POTASSIUM [Concomitant]
     Active Substance: POTASSIUM
  17. MULTIVITAMIN [Concomitant]
     Active Substance: VITAMINS

REACTIONS (4)
  - International normalised ratio increased [None]
  - Condition aggravated [None]
  - Pulmonary alveolar haemorrhage [None]
  - Cardiac failure congestive [None]

NARRATIVE: CASE EVENT DATE: 20150221
